FAERS Safety Report 12521949 (Version 2)
Quarter: 2016Q4

REPORT INFORMATION
  Report Type: Spontaneous
  Country: IQ (occurrence: IQ)
  Receive Date: 20160701
  Receipt Date: 20161101
  Transmission Date: 20170207
  Serious: Yes (Life-Threatening, Other)
  Sender: FDA-Public Use
  Company Number: IQ-ELI_LILLY_AND_COMPANY-IQ201606009099

PATIENT
  Sex: Female

DRUGS (4)
  1. ALIMTA [Suspect]
     Active Substance: PEMETREXED DISODIUM
     Indication: NON-SMALL CELL LUNG CANCER
     Dosage: 100 MG, UNKNOWN
     Route: 065
     Dates: start: 20160608
  2. VITAMIN B12 [Concomitant]
     Active Substance: CYANOCOBALAMIN
  3. FOLIC ACID. [Concomitant]
     Active Substance: FOLIC ACID
  4. DEXAMETHASONE. [Concomitant]
     Active Substance: DEXAMETHASONE

REACTIONS (1)
  - Shock [Unknown]
